FAERS Safety Report 16423738 (Version 1)
Quarter: 2019Q2

REPORT INFORMATION
  Report Type: Spontaneous
  Country: AU (occurrence: AU)
  Receive Date: 20190613
  Receipt Date: 20190613
  Transmission Date: 20190711
  Serious: Yes (Other)
  Sender: FDA-Public Use
  Company Number: AU-BAXTER-2019BAX010009

PATIENT
  Age: 69 Year
  Sex: Male

DRUGS (3)
  1. BAXTER 0.9% SODIUM CHLORIDE 450MG_50ML INJECTION BP BAG AHB1306_AHB136 [Suspect]
     Active Substance: SODIUM CHLORIDE
     Indication: MEDICATION DILUTION
     Dosage: TREATMENT WITH COMPOUNDED BATCH: 19E06KM00032 FROM 06MAY2019
     Route: 042
     Dates: start: 20190423
  2. STERILE WATER [Suspect]
     Active Substance: WATER
     Indication: MEDICATION DILUTION
     Dosage: TREATMENT WITH COMPOUNDED BATCH: 19E06KM00032 FROM 06MAY2019
     Route: 042
     Dates: start: 20190423
  3. CEFAZOLIN [Suspect]
     Active Substance: CEFAZOLIN
     Indication: SEPSIS
     Dosage: MANUFACTURER: AFT; TREATMENT WITH COMPOUNDED BATCH: 19E06KM00032 FROM 06MAY2019
     Route: 042
     Dates: start: 20190423

REACTIONS (5)
  - Nausea [Recovered/Resolved]
  - Incorrect drug administration rate [Unknown]
  - Dysgeusia [Recovered/Resolved]
  - Malaise [Recovering/Resolving]
  - Device infusion issue [Unknown]

NARRATIVE: CASE EVENT DATE: 201905
